FAERS Safety Report 9644895 (Version 3)
Quarter: 2013Q4

REPORT INFORMATION
  Report Type: Report from Study
  Country: IN (occurrence: IN)
  Receive Date: 20131025
  Receipt Date: 20131113
  Transmission Date: 20140711
  Serious: Yes (Hospitalization, Other)
  Sender: FDA-Public Use
  Company Number: PHHY2013IN119087

PATIENT
  Sex: Female

DRUGS (2)
  1. ACLASTA [Suspect]
     Indication: OSTEOPOROSIS
     Dosage: 5 MG/100ML/YEAR
     Route: 042
     Dates: start: 201108
  2. ACLASTA [Suspect]
     Dosage: 5 MG/100ML/YEAR
     Route: 042
     Dates: start: 20121017

REACTIONS (3)
  - Femoral neck fracture [Recovered/Resolved]
  - Myelodysplastic syndrome [Not Recovered/Not Resolved]
  - Malaise [Unknown]
